FAERS Safety Report 5447174-1 (Version None)
Quarter: 2007Q3

REPORT INFORMATION
  Report Type: 
  Country: None (occurrence: None)
  Receive Date: 20070910
  Receipt Date: 20070905
  Transmission Date: 20080115
  Serious: Yes (Hospitalization)
  Sender: FDA-Public Use
  Company Number: PHRM2007FR01900

PATIENT
  Age: 76 Year
  Sex: Male

DRUGS (3)
  1. VISKEN [Suspect]
     Indication: HYPERTENSION
     Route: 048
  2. TAVANIC [Suspect]
     Indication: SINUSITIS
     Dosage: 500 MG, ONCE/SINGLE
     Route: 048
     Dates: start: 20070220, end: 20070220
  3. SOLU-MEDROL [Suspect]
     Indication: SINUSITIS
     Dosage: 20 MG, ONCE/SINGLE
     Route: 048
     Dates: start: 20070220, end: 20070220

REACTIONS (19)
  - ANAPHYLACTIC SHOCK [None]
  - DYSPHONIA [None]
  - DYSPNOEA [None]
  - ELECTROCARDIOGRAM QT PROLONGED [None]
  - ERYTHEMA [None]
  - EYELID OEDEMA [None]
  - HEART RATE INCREASED [None]
  - HYPERTENSION [None]
  - LACRIMATION INCREASED [None]
  - LARYNGEAL OEDEMA [None]
  - LIP OEDEMA [None]
  - OCULAR HYPERAEMIA [None]
  - OXYGEN SATURATION DECREASED [None]
  - OXYGEN SUPPLEMENTATION [None]
  - PALATAL OEDEMA [None]
  - SINUSITIS [None]
  - SUPRACLAVICULAR RETRACTION [None]
  - TONGUE OEDEMA [None]
  - URTICARIA [None]
